FAERS Safety Report 12657405 (Version 1)
Quarter: 2016Q3

REPORT INFORMATION
  Report Type: Spontaneous
  Country: CH (occurrence: CH)
  Receive Date: 20160816
  Receipt Date: 20160816
  Transmission Date: 20161109
  Serious: Yes (Hospitalization)
  Sender: FDA-Public Use
  Company Number: CH-TEVA-682947ISR

PATIENT
  Age: 69 Year
  Sex: Male
  Weight: 94.4 kg

DRUGS (10)
  1. INDAPAMID-MEPHA [Suspect]
     Active Substance: INDAPAMIDE
     Dosage: 2.5 MILLIGRAM DAILY; STRENGTH 2.5 MG, START DATE UNKNOWN
     Route: 048
     Dates: end: 201607
  2. ATORVASTATIN PFIZER [Concomitant]
     Active Substance: ATORVASTATIN
     Dosage: 20 MILLIGRAM DAILY; STRENGTH 20 MG
     Route: 048
  3. ZYLORIC [Concomitant]
     Active Substance: ALLOPURINOL
     Dosage: 300 MILLIGRAM DAILY; STRENGTH 300 MG
     Route: 048
  4. LASILACTON [Suspect]
     Active Substance: FUROSEMIDE\SPIRONOLACTONE
     Dosage: 2 DOSAGE FORMS DAILY; STRENGTH REPORTED AS: 50 MG/20 MG
     Route: 048
     Dates: start: 20160702, end: 201607
  5. PHYSIOTENS [Concomitant]
     Active Substance: MOXONIDINE
     Dosage: .3 MILLIGRAM DAILY; STRENGTH 0.3 MG
     Route: 048
  6. PANTOZOL [Concomitant]
     Active Substance: PANTOPRAZOLE SODIUM
     Dosage: 40 MILLIGRAM DAILY; STRENGTH 40MG
     Route: 048
  7. ASPIRIN CARDIO [Concomitant]
     Active Substance: ASPIRIN
     Dosage: 100 MILLIGRAM DAILY; STRENGTH 100 MG
     Route: 048
  8. CONCOR [Concomitant]
     Active Substance: BISOPROLOL FUMARATE
     Dosage: 5 MILLIGRAM DAILY; STRENGTH 2.5 MG
     Route: 048
  9. CANDESARTAN SANDOZ [Concomitant]
     Active Substance: CANDESARTAN
     Dosage: 32 MILLIGRAM DAILY; STRENGTH 16 MG
     Route: 048
  10. ENALAPRIL-MEPHA [Suspect]
     Active Substance: ENALAPRIL
     Dosage: 10 MILLIGRAM DAILY; STRENGTH NOT SPECIFIED, START DATE UNKNOWN, LONG TERM TREATMENT
     Route: 048
     Dates: end: 201607

REACTIONS (5)
  - Diastolic dysfunction [None]
  - Hyperkalaemia [Recovered/Resolved]
  - Dyspnoea [None]
  - Acute kidney injury [Recovered/Resolved]
  - Sleep apnoea syndrome [None]

NARRATIVE: CASE EVENT DATE: 20160706
